FAERS Safety Report 4627298-9 (Version None)
Quarter: 2005Q2

REPORT INFORMATION
  Report Type: 
  Country: None (occurrence: None)
  Receive Date: 20050405
  Receipt Date: 20050401
  Transmission Date: 20051028
  Serious: Yes (Life-Threatening, Hospitalization)
  Sender: FDA-Public Use
  Company Number: US-BOEHRINGER INGELHEIM PHARMACEUTICALS, INC.-2005-BP-05414RO

PATIENT
  Age: 12 Week
  Sex: Female
  Weight: 4 kg

DRUGS (3)
  1. DIGOXIN [Suspect]
     Indication: VENTRICULAR SEPTAL DEFECT
     Dosage: 125 MCG BID (DOSING ERROR)
     Route: 048
  2. CAPTOPRIL [Concomitant]
  3. LASIX [Concomitant]

REACTIONS (10)
  - BUNDLE BRANCH BLOCK RIGHT [None]
  - CARDIAC ARREST [None]
  - COMA [None]
  - EXTRASYSTOLES [None]
  - GAIT DISTURBANCE [None]
  - HYPOTENSION [None]
  - MEDICATION ERROR [None]
  - THERAPEUTIC AGENT TOXICITY [None]
  - VENTRICULAR EXTRASYSTOLES [None]
  - VOMITING [None]
